FAERS Safety Report 24371979 (Version 1)
Quarter: 2024Q3

REPORT INFORMATION
  Report Type: Spontaneous
  Country: US (occurrence: None)
  Receive Date: 20240926
  Receipt Date: 20240926
  Transmission Date: 20241016
  Serious: Yes (Other)
  Sender: Public
  Company Number: None

PATIENT
  Sex: Female
  Weight: 65.7 kg

DRUGS (2)
  1. ANASTROZOLE [Suspect]
     Active Substance: ANASTROZOLE
     Indication: Breast cancer
     Dosage: OTHER QUANTITY : 1 TABLET(S);?FREQUENCY : DAILY;?
  2. ANASTROZOLE [Suspect]
     Active Substance: ANASTROZOLE
     Indication: Postoperative care

REACTIONS (14)
  - Alopecia [None]
  - Back pain [None]
  - Spinal pain [None]
  - Arthralgia [None]
  - Arthralgia [None]
  - Toothache [None]
  - Onychoclasis [None]
  - Dry mouth [None]
  - Erythema [None]
  - Skin exfoliation [None]
  - Pelvic pain [None]
  - Bone pain [None]
  - Insomnia [None]
  - Skin odour abnormal [None]
